FAERS Safety Report 6535539-6 (Version None)
Quarter: 2010Q1

REPORT INFORMATION
  Report Type: 
  Country: None (occurrence: None)
  Receive Date: 20100113
  Receipt Date: 20100105
  Transmission Date: 20100710
  Serious: Yes (Hospitalization, Other)
  Sender: FDA-Public Use
  Company Number: JP-BAYER-200912840BYL

PATIENT
  Age: 33 Year
  Sex: Male
  Weight: 48 kg

DRUGS (14)
  1. NEXAVAR [Suspect]
     Indication: HEPATIC NEOPLASM MALIGNANT
     Dosage: 800MG/DAY AND 400MG/DAY
     Route: 048
     Dates: start: 20090902, end: 20090914
  2. NEXAVAR [Suspect]
     Dosage: UNIT DOSE: 200 MG
     Route: 048
     Dates: start: 20090824, end: 20090902
  3. NEXAVAR [Suspect]
     Dosage: TOTAL DAILY DOSE: 800 MG  UNIT DOSE: 200 MG
     Route: 048
     Dates: start: 20090724, end: 20090731
  4. PACIF [Concomitant]
     Dosage: SINCE BEFORE ADMINISTRATION
     Route: 048
  5. PACIF [Concomitant]
     Route: 048
     Dates: end: 20090914
  6. MEILAX [Concomitant]
     Dosage: SINCE BEFORE ADMINISTRATION
     Route: 048
  7. NAIXAN [Concomitant]
     Route: 048
  8. NAIXAN [Concomitant]
     Dosage: SINCE BEFORE ADMINISTRATION
     Route: 048
  9. MYSLEE [Concomitant]
     Dosage: SINCE BEFORE ADMINISTRATION
     Route: 048
  10. MAGNESIUM OXIDE [Concomitant]
     Dosage: SINCE BEFORE ADMINISTRATION
     Route: 048
  11. OPSO [Concomitant]
     Dosage: SINCE BEFORE ADMINISTRATION
     Route: 048
  12. HIRUDOID [Concomitant]
     Indication: PROPHYLAXIS
     Route: 061
     Dates: start: 20090724
  13. KADIAN [Concomitant]
     Route: 048
     Dates: start: 20090914
  14. GABAPEN [Concomitant]
     Route: 048
     Dates: start: 20090917

REACTIONS (4)
  - ALOPECIA [None]
  - C-REACTIVE PROTEIN INCREASED [None]
  - HEPATIC FUNCTION ABNORMAL [None]
  - TUMOUR LYSIS SYNDROME [None]
